FAERS Safety Report 7013200-1 (Version None)
Quarter: 2010Q3

REPORT INFORMATION
  Report Type: 
  Country: None (occurrence: None)
  Receive Date: 20100924
  Receipt Date: 20100917
  Transmission Date: 20110219
  Serious: Yes (Other)
  Sender: FDA-Public Use
  Company Number: US-US-EMD SERONO, INC.-237170K09USA

PATIENT
  Sex: Female
  Weight: 61 kg

DRUGS (17)
  1. REBIF [Suspect]
     Indication: MULTIPLE SCLEROSIS
     Route: 058
     Dates: start: 20070101, end: 20090601
  2. UNSPECIFIED BLOOD PRESSURE MEDICATIONS [Concomitant]
     Indication: HYPERTENSION
  3. UNSPECIFIED CHOLESTEROL MEDICATION [Concomitant]
     Indication: BLOOD CHOLESTEROL INCREASED
  4. ABILIFY [Concomitant]
     Indication: DEPRESSION
  5. PROZAC [Concomitant]
     Indication: DEPRESSION
  6. TEGRETOL [Concomitant]
     Indication: EPILEPSY
  7. NORVASC [Concomitant]
  8. SIMVASTATIN [Concomitant]
  9. XANAX [Concomitant]
  10. SPIRIVA [Concomitant]
     Route: 055
  11. AMBIEN [Concomitant]
  12. IMODIUM [Concomitant]
  13. BENEFIBER [Concomitant]
  14. ARICEPT [Concomitant]
  15. AMANTADINE [Concomitant]
  16. CYMBALTA [Concomitant]
  17. MYSOLINE [Concomitant]

REACTIONS (1)
  - GRAND MAL CONVULSION [None]
